FAERS Safety Report 25970112 (Version 1)
Quarter: 2025Q4

REPORT INFORMATION
  Report Type: Spontaneous
  Country: US (occurrence: US)
  Receive Date: 20251028
  Receipt Date: 20251028
  Transmission Date: 20260118
  Serious: Yes (Hospitalization, Other)
  Sender: AMGEN
  Company Number: US-AMGEN-USASP2025210800

PATIENT
  Age: 63 Year
  Sex: Female

DRUGS (8)
  1. XGEVA [Suspect]
     Active Substance: DENOSUMAB
     Indication: Hypercalcaemia of malignancy
     Dosage: 120 MILLIGRAM
     Route: 040
  2. RITUXIMAB [Suspect]
     Active Substance: RITUXIMAB
     Indication: B-cell small lymphocytic lymphoma
     Dosage: UNK
     Route: 065
  3. RITUXIMAB [Suspect]
     Active Substance: RITUXIMAB
     Dosage: UNK, RITUXIMAB AGAIN
     Route: 065
  4. CALCITONIN [Concomitant]
     Active Substance: CALCITONIN
     Indication: Hypercalcaemia of malignancy
  5. CALCITONIN [Concomitant]
     Active Substance: CALCITONIN
     Dosage: 4 MILLIGRAM/KILOGRAM
  6. PAMIDRONATE [Concomitant]
     Active Substance: PAMIDRONATE DISODIUM
     Indication: Hypercalcaemia of malignancy
     Dosage: 90 MILLIGRAM
     Route: 040
  7. BENDAMUSTINE [Concomitant]
     Active Substance: BENDAMUSTINE
     Indication: B-cell small lymphocytic lymphoma
  8. VENETOCLAX [Concomitant]
     Active Substance: VENETOCLAX
     Indication: B-cell small lymphocytic lymphoma

REACTIONS (3)
  - B-cell small lymphocytic lymphoma recurrent [Unknown]
  - Chronic lymphocytic leukaemia [Unknown]
  - Hypercalcaemia of malignancy [Unknown]
